FAERS Safety Report 13833533 (Version 1)
Quarter: 2017Q3

REPORT INFORMATION
  Report Type: Spontaneous
  Country: US (occurrence: US)
  Receive Date: 20170803
  Receipt Date: 20170803
  Transmission Date: 20171127
  Serious: Yes (Life-Threatening, Hospitalization)
  Sender: FDA-Public Use
  Company Number: None

PATIENT
  Sex: Female

DRUGS (1)
  1. NINLARO [Suspect]
     Active Substance: IXAZOMIB
     Indication: PLASMA CELL MYELOMA
     Dosage: FREQUENCY - DAYS 1, 8 AND 15 OF A 28 DAY CYCLE
     Route: 048
     Dates: start: 20170721

REACTIONS (2)
  - Dyspnoea [None]
  - Hypersensitivity [None]
